FAERS Safety Report 8929030 (Version 2)
Quarter: 2012Q4

REPORT INFORMATION
  Report Type: 
  Country: BR (occurrence: BR)
  Receive Date: 20121128
  Receipt Date: 20121203
  Transmission Date: 20130627
  Serious: Yes (Death, Hospitalization, Other)
  Sender: FDA-Public Use
  Company Number: PHHY2012BR108773

PATIENT
  Age: 84 None
  Sex: Female

DRUGS (8)
  1. EXELON [Suspect]
     Indication: DEMENTIA ALZHEIMER^S TYPE
     Dosage: 3 ml, BID
     Route: 048
     Dates: start: 1997
  2. LOTAR [Concomitant]
     Indication: HYPERTENSION
     Dosage: 1 DF, Daily (in the morning)
     Route: 048
  3. SELOZOK [Concomitant]
     Indication: HYPERTENSION
     Dosage: 1 DF, Daily (in the morning)
     Route: 048
  4. CARDIO ASPIRIN [Concomitant]
     Indication: ANTICOAGULANT THERAPY
     Dosage: 1 DF, Daily (at lunch)
     Route: 048
  5. CALCIUM ^SANDOZ^ [Concomitant]
     Indication: OSTEOPOROSIS
     Dosage: 1 DF, TID (on monday, wednesday and friday)
     Route: 048
  6. SIMVASTATIN [Concomitant]
     Indication: BLOOD CHOLESTEROL
     Dosage: 1 DF, daily (at night)
     Route: 048
  7. OMEPRAZOLE [Concomitant]
     Indication: ABDOMINAL DISCOMFORT
     Dosage: 1 DF, TID (weekly)
     Route: 048
  8. ALOIS [Concomitant]
     Indication: DEMENTIA ALZHEIMER^S TYPE
     Dosage: 1 DF, BID (one in morning and one in evening)
     Route: 048

REACTIONS (8)
  - Multi-organ failure [Fatal]
  - Pneumonia aspiration [Fatal]
  - Hypertensive heart disease [Fatal]
  - Senile dementia [Fatal]
  - Viral infection [Recovered/Resolved]
  - Vomiting [Recovered/Resolved]
  - Diarrhoea [Recovered/Resolved]
  - Urinary tract infection [Recovered/Resolved]
